FAERS Safety Report 5797441-7 (Version None)
Quarter: 2008Q3

REPORT INFORMATION
  Report Type: 
  Country: None (occurrence: None)
  Receive Date: 20080701
  Receipt Date: 20080630
  Transmission Date: 20090109
  Serious: Yes (Other)
  Sender: FDA-Public Use
  Company Number: BR-BOEHRINGER INGELHEIM GMBH, GERMANY-2008-BP-09551BR

PATIENT
  Age: 64 Year
  Sex: Female

DRUGS (4)
  1. ATENSINA [Suspect]
     Indication: HYPERTENSION
     Route: 048
     Dates: end: 20080601
  2. PURAN T4 [Concomitant]
     Indication: HYPERTHYROIDISM
     Route: 048
  3. SINVASTATINA [Concomitant]
     Indication: BLOOD CHOLESTEROL INCREASED
  4. HIDROCLOROTIAZIDA [Concomitant]
     Indication: HYPERTENSION

REACTIONS (2)
  - BLOOD PRESSURE INCREASED [None]
  - HEART RATE INCREASED [None]
